FAERS Safety Report 5745050-8 (Version None)
Quarter: 2008Q2

REPORT INFORMATION
  Report Type: 
  Country: None (occurrence: None)
  Receive Date: 20080521
  Receipt Date: 20080514
  Transmission Date: 20081010
  Serious: Yes (Death)
  Sender: FDA-Public Use
  Company Number: IT-ABBOTT-08P-083-0448364-00

PATIENT
  Sex: Male
  Weight: 89 kg

DRUGS (3)
  1. KLACID [Suspect]
     Indication: NASOPHARYNGITIS
     Route: 048
     Dates: start: 20080221, end: 20080225
  2. BENTALAN [Concomitant]
     Indication: NASOPHARYNGITIS
     Route: 048
     Dates: start: 20080221, end: 20080223
  3. ACETYLCYSTEINE [Concomitant]
     Indication: NASOPHARYNGITIS

REACTIONS (2)
  - SUDDEN CARDIAC DEATH [None]
  - VENTRICULAR TACHYCARDIA [None]
